FAERS Safety Report 4775079-8 (Version None)
Quarter: 2005Q3

REPORT INFORMATION
  Report Type: 
  Country: None (occurrence: None)
  Receive Date: 20050919
  Receipt Date: 20050830
  Transmission Date: 20060218
  Serious: Yes (Hospitalization)
  Sender: FDA-Public Use
  Company Number: WAES 0508TWN00014

PATIENT
  Sex: 0

DRUGS (1)
  1. COZAAR [Suspect]
     Indication: CARDIAC FAILURE
     Dosage: PO
     Route: 048

REACTIONS (4)
  - ABDOMINAL DISCOMFORT [None]
  - CARDIAC FAILURE [None]
  - CONDITION AGGRAVATED [None]
  - MYOCARDIAL ISCHAEMIA [None]
